FAERS Safety Report 5776506-X (Version None)
Quarter: 2008Q2

REPORT INFORMATION
  Report Type: 
  Country: None (occurrence: None)
  Receive Date: 20080617
  Receipt Date: 20080617
  Transmission Date: 20081010
  Serious: Yes (Life-Threatening, Hospitalization)
  Sender: FDA-Public Use
  Company Number: None

PATIENT
  Age: 46 Year
  Sex: Female
  Weight: 61.2356 kg

DRUGS (2)
  1. LARIAM [Suspect]
     Indication: FOREIGN TRAVEL
     Dosage: ONE TABLET WEEKLY
     Dates: start: 19990203, end: 19990330
  2. LARIAM [Suspect]
     Indication: FOREIGN TRAVEL
     Dosage: ONE TABLET WEEKLY
     Dates: start: 20001215, end: 20010120

REACTIONS (3)
  - MENTAL DISORDER [None]
  - PANIC ATTACK [None]
  - SUICIDAL IDEATION [None]
